FAERS Safety Report 11569277 (Version 1)
Quarter: 2015Q3

REPORT INFORMATION
  Report Type: Spontaneous
  Country: GB (occurrence: GB)
  Receive Date: 20150929
  Receipt Date: 20150929
  Transmission Date: 20151125
  Serious: Yes (Disabling, Other)
  Sender: FDA-Public Use
  Company Number: GB-JNJFOC-20150918874

PATIENT
  Age: 31 Year
  Sex: Female
  Weight: 96 kg

DRUGS (1)
  1. PALIPERIDONE PALMITATE [Suspect]
     Active Substance: PALIPERIDONE PALMITATE
     Indication: AFFECTIVE DISORDER
     Route: 030
     Dates: start: 20150820, end: 20150913

REACTIONS (5)
  - Eyelid disorder [Not Recovered/Not Resolved]
  - Sedation [Not Recovered/Not Resolved]
  - Tremor [Not Recovered/Not Resolved]
  - Extrapyramidal disorder [Not Recovered/Not Resolved]
  - Enuresis [Not Recovered/Not Resolved]
